FAERS Safety Report 16795377 (Version 1)
Quarter: 2019Q3

REPORT INFORMATION
  Report Type: Spontaneous
  Country: JP (occurrence: JP)
  Receive Date: 20190911
  Receipt Date: 20190911
  Transmission Date: 20191005
  Serious: Yes (Death)
  Sender: FDA-Public Use
  Company Number: JP-PFIZER INC-2019387998

PATIENT
  Age: 79 Year
  Sex: Male
  Weight: 62.1 kg

DRUGS (2)
  1. ZYVOX [Suspect]
     Active Substance: LINEZOLID
     Indication: ABSCESS BACTERIAL
     Dosage: 600 MG, 2X/DAY
     Route: 041
     Dates: start: 20190501
  2. ZYVOX [Suspect]
     Active Substance: LINEZOLID
     Indication: STAPHYLOCOCCAL INFECTION

REACTIONS (9)
  - Chest discomfort [Fatal]
  - Malaise [Fatal]
  - Lactic acidosis [Fatal]
  - Atrial fibrillation [Fatal]
  - Palpitations [Fatal]
  - Cardiac arrest [Fatal]
  - Intercostal neuralgia [Fatal]
  - Bradycardia [Fatal]
  - Pneumonia [Fatal]

NARRATIVE: CASE EVENT DATE: 20190503
